FAERS Safety Report 25452500 (Version 1)
Quarter: 2025Q2

REPORT INFORMATION
  Report Type: Spontaneous
  Country: CA (occurrence: CA)
  Receive Date: 20250618
  Receipt Date: 20250618
  Transmission Date: 20250716
  Serious: Yes (Life-Threatening, Disabling)
  Sender: EISAI
  Company Number: CA-Eisai-EC-2025-191346

PATIENT
  Age: 72 Year
  Sex: Female
  Weight: 80 kg

DRUGS (1)
  1. DAYVIGO [Suspect]
     Active Substance: LEMBOREXANT
     Indication: Insomnia

REACTIONS (2)
  - Dysphagia [Unknown]
  - Hallucination [Unknown]
